FAERS Safety Report 24770271 (Version 1)
Quarter: 2024Q4

REPORT INFORMATION
  Report Type: Other
  Country: ES (occurrence: ES)
  Receive Date: 20241224
  Receipt Date: 20241224
  Transmission Date: 20250115
  Serious: Yes (Hospitalization)
  Sender: GLENMARK
  Company Number: None

PATIENT

DRUGS (5)
  1. GABAPENTIN [Suspect]
     Active Substance: GABAPENTIN
     Indication: Back pain
     Dosage: 600 MILLIGRAM, QD (300MG AL DESAYUNO Y LA COMIDA  )
     Route: 048
     Dates: start: 20241120, end: 20241130
  2. GABAPENTIN [Suspect]
     Active Substance: GABAPENTIN
     Dosage: UNK
     Route: 065
  3. ZALDIAR [Concomitant]
     Active Substance: ACETAMINOPHEN\TRAMADOL HYDROCHLORIDE
     Indication: Back pain
     Dosage: 2 DOSAGE FORM, (IN EVERY 8 HOURS, 2-2-2  )
     Route: 048
     Dates: start: 20230619, end: 20241130
  4. METAMIZOL [Concomitant]
     Active Substance: METAMIZOLE SODIUM
     Indication: Back pain
     Dosage: 575 MILLIGRAM, (PER 8 HOURS) (575MG CADA 8 HORAS  )
     Route: 048
     Dates: start: 20240308, end: 20241130
  5. PREGABALIN [Concomitant]
     Active Substance: PREGABALIN
     Indication: Back pain
     Dosage: 75 MILLIGRAM, (75MG CADA 24 HORAS  )
     Route: 048
     Dates: start: 20240524, end: 20241120

REACTIONS (1)
  - Psychotic disorder [Recovered/Resolved]

NARRATIVE: CASE EVENT DATE: 20241129
